FAERS Safety Report 13563078 (Version 2)
Quarter: 2017Q4

REPORT INFORMATION
  Report Type: Spontaneous
  Country: US (occurrence: US)
  Receive Date: 20170519
  Receipt Date: 20171031
  Transmission Date: 20180320
  Serious: No
  Sender: FDA-Public Use
  Company Number: US-MYLANLABS-2017M1006789

PATIENT
  Age: 56 Year
  Sex: Female
  Weight: 74.38 kg

DRUGS (1)
  1. ACEBUTOLOL HYDROCHLORIDE CAPSULES, USP [Suspect]
     Active Substance: ACEBUTOLOL HYDROCHLORIDE
     Indication: VENTRICULAR EXTRASYSTOLES
     Dosage: 200 MG, TID
     Route: 048
     Dates: start: 2014, end: 201707

REACTIONS (6)
  - Urticaria [Unknown]
  - Pruritus [Unknown]
  - Alopecia [Unknown]
  - Rash [Unknown]
  - Hypersensitivity [Not Recovered/Not Resolved]
  - Reaction to excipient [Unknown]

NARRATIVE: CASE EVENT DATE: 20170131
